FAERS Safety Report 6282551-0 (Version None)
Quarter: 2009Q3

REPORT INFORMATION
  Report Type: 
  Country: None (occurrence: None)
  Receive Date: 20090724
  Receipt Date: 20090715
  Transmission Date: 20100115
  Serious: Yes (Life-Threatening, Hospitalization)
  Sender: FDA-Public Use
  Company Number: DE-BAYER-200925772GPV

PATIENT
  Age: 84 Year
  Sex: Female
  Weight: 63 kg

DRUGS (17)
  1. ASPIRIN [Suspect]
     Indication: CORONARY ARTERY DISEASE
     Dosage: TOTAL DAILY DOSE: 100 MG  UNIT DOSE: 100 MG
     Route: 048
     Dates: start: 19930101, end: 20090414
  2. ROCEPHIN [Suspect]
     Indication: URINARY TRACT INFECTION
     Dosage: TOTAL DAILY DOSE: 2 G
     Route: 042
     Dates: start: 20090326, end: 20090406
  3. PREDNISOLONE [Suspect]
     Indication: CHRONIC OBSTRUCTIVE PULMONARY DISEASE
     Dosage: TOTAL DAILY DOSE: 5 MG  UNIT DOSE: 5 MG
     Route: 048
     Dates: start: 20090326, end: 20090604
  4. PANTOZOL [Suspect]
     Indication: PROPHYLAXIS AGAINST GASTROINTESTINAL ULCER
     Dosage: TOTAL DAILY DOSE: 40 MG  UNIT DOSE: 40 MG
     Route: 048
     Dates: start: 20090101
  5. RULID [Suspect]
     Indication: PNEUMONIA
     Dosage: TOTAL DAILY DOSE: 300 MG  UNIT DOSE: 300 MG
     Route: 048
     Dates: start: 20090326, end: 20090406
  6. SYMBICORT TURBOHALER DRACO [Suspect]
     Indication: CHRONIC OBSTRUCTIVE PULMONARY DISEASE
     Route: 055
     Dates: start: 20090101
  7. ACTRAPID HUMAN [Concomitant]
     Indication: TYPE 1 DIABETES MELLITUS
     Dosage: 12-4-8
     Route: 058
  8. ALDACTONE [Concomitant]
     Indication: HYPERTENSION
     Dosage: TOTAL DAILY DOSE: 25 MG  UNIT DOSE: 25 MG
     Route: 048
     Dates: end: 20090407
  9. CARMEN [Concomitant]
     Indication: HYPERTENSION
     Dosage: TOTAL DAILY DOSE: 20 MG  UNIT DOSE: 10 MG
     Route: 048
  10. CARVEDILOL [Concomitant]
     Indication: HYPERTENSION
     Dosage: TOTAL DAILY DOSE: 50 MG  UNIT DOSE: 25 MG
     Route: 048
     Dates: start: 19950101
  11. LANTUS [Concomitant]
     Indication: TYPE 1 DIABETES MELLITUS
     Dosage: TOTAL DAILY DOSE: 8 IU
     Route: 058
  12. RAMIPRIL [Concomitant]
     Indication: HYPERTENSION
     Dosage: TOTAL DAILY DOSE: 20 MG  UNIT DOSE: 10 MG
     Route: 048
  13. SPIRIVA [Concomitant]
     Indication: CHRONIC OBSTRUCTIVE PULMONARY DISEASE
     Dosage: TOTAL DAILY DOSE: 18 ?G
     Route: 055
  14. TOREM [Concomitant]
     Indication: HYPERTENSION
     Dosage: TOTAL DAILY DOSE: 10 MG  UNIT DOSE: 10 MG
     Route: 048
     Dates: end: 20090407
  15. XIPAMIDE [Concomitant]
     Indication: HYPERTENSION
     Dosage: TOTAL DAILY DOSE: 200 MG  UNIT DOSE: 200 MG
     Route: 048
     Dates: start: 20090326, end: 20090414
  16. IMIPENEM [Concomitant]
     Indication: URINARY TRACT INFECTION
     Dates: end: 20090421
  17. HEPARIN [Concomitant]

REACTIONS (6)
  - CLOSTRIDIUM DIFFICILE COLITIS [None]
  - DEHYDRATION [None]
  - HYPOTENSION [None]
  - METABOLIC ACIDOSIS [None]
  - SOMNOLENCE [None]
  - TACHYCARDIA [None]
